FAERS Safety Report 9324903 (Version 2)
Quarter: 2013Q2

REPORT INFORMATION
  Report Type: Report from Study
  Country: FR (occurrence: FR)
  Receive Date: 20130603
  Receipt Date: 20130628
  Transmission Date: 20140414
  Serious: Yes (Hospitalization)
  Sender: FDA-Public Use
  Company Number: FR-ACTELION-A-CH2013-83666

PATIENT
  Age: 26 Year
  Sex: Male
  Weight: 68 kg

DRUGS (1)
  1. ZAVESCA [Suspect]
     Indication: NIEMANN-PICK DISEASE
     Dosage: 200 MG, TID
     Route: 048
     Dates: start: 20101012, end: 20121217

REACTIONS (2)
  - Schizophrenia [Unknown]
  - Treatment noncompliance [Unknown]
